FAERS Safety Report 4521326-7 (Version None)
Quarter: 2004Q4

REPORT INFORMATION
  Report Type: 
  Country: None (occurrence: None)
  Receive Date: 20041208
  Receipt Date: 20041126
  Transmission Date: 20050328
  Serious: Yes (Hospitalization)
  Sender: FDA-Public Use
  Company Number: PHRM2004FR03463

PATIENT
  Age: 67 Year
  Sex: Male
  Weight: 90 kg

DRUGS (3)
  1. ALDALIX [Suspect]
     Indication: ESSENTIAL HYPERTENSION
     Dosage: 1 DF, QD
     Route: 048
     Dates: end: 20010428
  2. TAREG [Suspect]
     Indication: ESSENTIAL HYPERTENSION
     Dosage: 80 MG/DAY
     Route: 048
     Dates: end: 20010428
  3. DIGOXIN [Suspect]
     Indication: CARDIAC FAILURE
     Dosage: 5 DF/WEEK
     Route: 048
     Dates: end: 20010428

REACTIONS (4)
  - ATRIOVENTRICULAR BLOCK FIRST DEGREE [None]
  - BLOOD CREATININE INCREASED [None]
  - HYPERKALAEMIA [None]
  - RENAL FAILURE ACUTE [None]
